FAERS Safety Report 14204842 (Version 1)
Quarter: 2017Q4

REPORT INFORMATION
  Report Type: Spontaneous
  Country: US (occurrence: US)
  Receive Date: 20171118
  Receipt Date: 20171118
  Transmission Date: 20180321
  Serious: Yes (Other)
  Sender: FDA-Public Use
  Company Number: None

PATIENT
  Age: 38 Year
  Sex: Female

DRUGS (1)
  1. BUPRENORPHINE/NALOXONE [Suspect]
     Active Substance: BUPRENORPHINE\NALOXONE
     Indication: DRUG DEPENDENCE
     Route: 060
     Dates: start: 20171021, end: 20171118

REACTIONS (7)
  - Tongue disorder [None]
  - Therapy change [None]
  - Condition aggravated [None]
  - Product use complaint [None]
  - Gastrooesophageal reflux disease [None]
  - Headache [None]
  - Nausea [None]
